FAERS Safety Report 5041333-8 (Version None)
Quarter: 2006Q2

REPORT INFORMATION
  Report Type: 
  Country: None (occurrence: None)
  Receive Date: 20060626
  Receipt Date: 20060614
  Transmission Date: 20061013
  Serious: Yes (Hospitalization)
  Sender: FDA-Public Use
  Company Number: 430031M06USA

PATIENT
  Age: 68 Year
  Sex: Male
  Weight: 67.1 kg

DRUGS (18)
  1. NOVANTRONE [Suspect]
     Indication: ACUTE MYELOID LEUKAEMIA
     Dates: start: 20060501
  2. CEP-701 [Suspect]
     Dosage: 80 MG, 2 IN 1 DAYS, ORAL
     Route: 048
     Dates: start: 20060525, end: 20060528
  3. ETOPOSIDE [Suspect]
     Dates: start: 20060501
  4. ZOSYN [Concomitant]
  5. VANCOMYCIN (VANCOMYCIN/00314401/) [Concomitant]
  6. VALTREX [Concomitant]
  7. DEXAMETHASONE (DEXAMETHASONE SODIUM PHOSPHATE) [Concomitant]
  8. LASIX [Concomitant]
  9. DIPHENHYDRAMINE HCL [Concomitant]
  10. ACETAMINOPHEN [Concomitant]
  11. ALLOPURINOL [Concomitant]
  12. SODIUM CHLORIDE 0.9% [Concomitant]
  13. ANZEMET [Concomitant]
  14. FLUOROMETHOLONE (FLUOROMETHOLONE) [Concomitant]
  15. PREGABALIN (PREGABALIN) [Concomitant]
  16. CASPOFUNGIN ACETATE (CASPOFUNGIN ACETATE) [Concomitant]
  17. VITAMIN SUPPLEMENTS (ASCORBIC ACID) [Concomitant]
  18. AMBISOME B (AMPHOTERICIN B) [Concomitant]

REACTIONS (5)
  - ENTEROCOCCAL INFECTION [None]
  - FEBRILE NEUTROPENIA [None]
  - HYPERNATRAEMIA [None]
  - NEUTROPENIC INFECTION [None]
  - PNEUMONIA [None]
